FAERS Safety Report 7131802-9 (Version None)
Quarter: 2010Q4

REPORT INFORMATION
  Report Type: 
  Country: None (occurrence: None)
  Receive Date: 20101202
  Receipt Date: 20101122
  Transmission Date: 20110411
  Serious: No
  Sender: FDA-Public Use
  Company Number: US-BIOGENIDEC-2010BI036105

PATIENT
  Sex: Female

DRUGS (11)
  1. TYSABRI [Suspect]
     Indication: MULTIPLE SCLEROSIS
     Route: 042
     Dates: start: 20081217
  2. DETROL LA [Concomitant]
  3. TRIAMTERENE [Concomitant]
  4. LEVOXYL [Concomitant]
  5. PROVIGIL [Concomitant]
  6. VITAMIN D [Concomitant]
  7. CRESTOR [Concomitant]
  8. SERTRALINE HYDROCHLORIDE [Concomitant]
  9. TEMAZEPAM [Concomitant]
  10. OMEPRAZOLE [Concomitant]
  11. HYDROCHLOROTHIAZIDE [Concomitant]

REACTIONS (3)
  - HEPATIC STEATOSIS [None]
  - LIVER FUNCTION TEST ABNORMAL [None]
  - MULTIPLE SCLEROSIS [None]
